FAERS Safety Report 18686766 (Version 1)
Quarter: 2020Q4

REPORT INFORMATION
  Report Type: Spontaneous
  Country: US (occurrence: US)
  Receive Date: 20201231
  Receipt Date: 20201231
  Transmission Date: 20210114
  Serious: Yes (Hospitalization, Other)
  Sender: FDA-Public Use
  Company Number: US-AMGEN-USASP2020210245

PATIENT

DRUGS (2)
  1. IMLYGIC [Suspect]
     Active Substance: TALIMOGENE LAHERPAREPVEC
     Dosage: UNK (HIGHER DOSE) ^10 TO THE 8TH^ (100 MILLION PFU PER ML) DOSE
     Route: 065
     Dates: start: 202012
  2. IMLYGIC [Suspect]
     Active Substance: TALIMOGENE LAHERPAREPVEC
     Indication: MALIGNANT MELANOMA
     Dosage: UNK (LOWER DOSE)
     Route: 065
     Dates: start: 202011

REACTIONS (5)
  - Pyrexia [Recovered/Resolved]
  - Cholecystectomy [Unknown]
  - Speech disorder [Not Recovered/Not Resolved]
  - Hypotension [Recovered/Resolved]
  - Meningoencephalitis herpetic [Unknown]

NARRATIVE: CASE EVENT DATE: 202012
